FAERS Safety Report 6203041-7 (Version None)
Quarter: 2009Q2

REPORT INFORMATION
  Report Type: 
  Country: None (occurrence: None)
  Receive Date: 20090521
  Receipt Date: 20090521
  Transmission Date: 20091009
  Serious: Yes (Life-Threatening, Hospitalization, Disabling)
  Sender: FDA-Public Use
  Company Number: None

PATIENT
  Age: 40 Year
  Sex: Male
  Weight: 88.4514 kg

DRUGS (2)
  1. TRICOR [Suspect]
     Indication: BLOOD CHOLESTEROL INCREASED
     Dosage: 145MG 1 /DAY PO
     Route: 048
     Dates: start: 20090501, end: 20090510
  2. TEGRETOL-XR [Suspect]
     Indication: EPILEPSY
     Dosage: 400MG 2 /DAY PO
     Route: 048
     Dates: start: 19850401, end: 20090520

REACTIONS (4)
  - ANTICONVULSANT DRUG LEVEL DECREASED [None]
  - CONVULSION [None]
  - DRUG INTERACTION [None]
  - MALABSORPTION [None]
